FAERS Safety Report 9305659 (Version 1)
Quarter: 2013Q2

REPORT INFORMATION
  Report Type: Spontaneous
  Country: IE (occurrence: IE)
  Receive Date: 20130523
  Receipt Date: 20130523
  Transmission Date: 20140414
  Serious: Yes (Other)
  Sender: FDA-Public Use
  Company Number: IE-PFIZER INC-2013153898

PATIENT
  Age: 51 Year
  Sex: Female

DRUGS (1)
  1. CRIZOTINIB [Suspect]
     Indication: NON-SMALL CELL LUNG CANCER

REACTIONS (1)
  - Blindness [Unknown]
